FAERS Safety Report 8445756-6 (Version None)
Quarter: 2012Q2

REPORT INFORMATION
  Report Type: 
  Country: None (occurrence: None)
  Receive Date: 20120611
  Receipt Date: 20120526
  Transmission Date: 20120825
  Serious: Yes (Hospitalization)
  Sender: FDA-Public Use
  Company Number: 2012AP001627

PATIENT
  Age: 79 Year
  Sex: Male

DRUGS (1)
  1. SERTRALINE HYDROCHLORIDE [Suspect]
     Indication: PRODUCT USED FOR UNKNOWN INDICATION
     Dosage: 50 MG;QD

REACTIONS (10)
  - HYPERHIDROSIS [None]
  - MYOCLONUS [None]
  - FATIGUE [None]
  - LEUKOCYTOSIS [None]
  - MYDRIASIS [None]
  - HYPERREFLEXIA [None]
  - BLOOD PRESSURE INCREASED [None]
  - NYSTAGMUS [None]
  - SEROTONIN SYNDROME [None]
  - TACHYCARDIA [None]
